FAERS Safety Report 9103285 (Version 1)
Quarter: 2013Q1

REPORT INFORMATION
  Report Type: Report from Study
  Country: CA (occurrence: CA)
  Receive Date: 20130218
  Receipt Date: 20130218
  Transmission Date: 20140127
  Serious: Yes (Hospitalization)
  Sender: FDA-Public Use
  Company Number: CA-ROCHE-1189135

PATIENT
  Sex: Female

DRUGS (6)
  1. XELODA [Suspect]
     Indication: BREAST CANCER METASTATIC
     Dosage: THERAPY START DATE: APRIL 2012
     Route: 048
     Dates: end: 201209
  2. HERCEPTIN [Suspect]
     Indication: BREAST CANCER METASTATIC
     Dosage: THERAPY START DATE: 01/MAY/2012
     Route: 042
  3. HERCEPTIN [Suspect]
     Dosage: MAINTENANCE DOSE
     Route: 042
  4. MAXERAN [Suspect]
     Indication: PRODUCT USED FOR UNKNOWN INDICATION
     Route: 065
     Dates: end: 2012
  5. CRESTOR [Concomitant]
  6. PAMIDRONATE [Concomitant]

REACTIONS (3)
  - Malaise [Recovered/Resolved]
  - Infusion related reaction [Recovered/Resolved]
  - Colitis [Recovered/Resolved]
